FAERS Safety Report 6238773-8 (Version None)
Quarter: 2009Q2

REPORT INFORMATION
  Report Type: 
  Country: None (occurrence: None)
  Receive Date: 20090617
  Receipt Date: 20090617
  Transmission Date: 20091009
  Serious: Yes (Other)
  Sender: FDA-Public Use
  Company Number: None

PATIENT
  Age: 55 Year
  Sex: Female
  Weight: 70.3075 kg

DRUGS (2)
  1. ZICAM SWABS [Suspect]
     Indication: NASOPHARYNGITIS
     Dates: start: 20040101, end: 20051231
  2. ZICAM SQUEEZ BOTTLE [Suspect]

REACTIONS (1)
  - HYPOSMIA [None]
